FAERS Safety Report 5758097-2 (Version None)
Quarter: 2008Q2

REPORT INFORMATION
  Report Type: 
  Country: None (occurrence: None)
  Receive Date: 20080530
  Receipt Date: 20080520
  Transmission Date: 20081010
  Serious: Yes (Disabling)
  Sender: FDA-Public Use
  Company Number: 2008-01398

PATIENT
  Age: 76 Year
  Sex: Male

DRUGS (2)
  1. VELCADE [Suspect]
     Indication: MULTIPLE MYELOMA
     Dosage: 2.6 MG
     Dates: start: 20071022
  2. AREDIA [Concomitant]

REACTIONS (6)
  - ASTHENIA [None]
  - FATIGUE [None]
  - MYALGIA [None]
  - NEUROPATHY PERIPHERAL [None]
  - PAIN [None]
  - WHEELCHAIR USER [None]
